FAERS Safety Report 12204904 (Version 1)
Quarter: 2016Q1

REPORT INFORMATION
  Report Type: Spontaneous
  Country: US (occurrence: None)
  Receive Date: 20160322
  Receipt Date: 20160322
  Transmission Date: 20160526
  Serious: No
  Sender: FDA-Public Use
  Company Number: None

PATIENT
  Age: 67 Year
  Sex: Female
  Weight: 65.77 kg

DRUGS (1)
  1. RYTHMOL SR [Suspect]
     Active Substance: PROPAFENONE HYDROCHLORIDE
     Dosage: 2 X -- 2 PILLS A DAY 4 TOTAL

REACTIONS (6)
  - Gastritis [None]
  - Renal disorder [None]
  - Gastrooesophageal reflux disease [None]
  - Unevaluable event [None]
  - Nightmare [None]
  - Constipation [None]
